FAERS Safety Report 6268290-0 (Version None)
Quarter: 2009Q3

REPORT INFORMATION
  Report Type: 
  Country: None (occurrence: None)
  Receive Date: 20090713
  Receipt Date: 20090713
  Transmission Date: 20100115
  Serious: Yes (Other)
  Sender: FDA-Public Use
  Company Number: None

PATIENT
  Age: 49 Year
  Sex: Male
  Weight: 104.3273 kg

DRUGS (1)
  1. ALDARA [Suspect]
     Indication: ANOGENITAL WARTS
     Dosage: 5% CREAM OR 0.25G 3X PER WEEK TOP
     Route: 061
     Dates: start: 20090618, end: 20090628

REACTIONS (14)
  - ARTHRALGIA [None]
  - BACK PAIN [None]
  - DEAFNESS UNILATERAL [None]
  - DIZZINESS [None]
  - DRY EYE [None]
  - EYE PAIN [None]
  - FACIAL PAIN [None]
  - HEADACHE [None]
  - HYPOAESTHESIA [None]
  - JOINT SWELLING [None]
  - PRESYNCOPE [None]
  - READING DISORDER [None]
  - VERTIGO [None]
  - VISION BLURRED [None]
